FAERS Safety Report 12387184 (Version 1)
Quarter: 2016Q2

REPORT INFORMATION
  Report Type: Report from Study
  Country: US (occurrence: US)
  Receive Date: 20160519
  Receipt Date: 20160519
  Transmission Date: 20160815
  Serious: Yes (Other)
  Sender: FDA-Public Use
  Company Number: US-ALLERGAN-1655938CX

PATIENT
  Age: 51 Year
  Sex: Female

DRUGS (9)
  1. SKINMEDICA RETINOL COMPLEX 0.5 [Suspect]
     Active Substance: COSMETICS
     Indication: PROPHYLAXIS
     Dosage: UNK
     Route: 061
     Dates: start: 20160115
  2. SKINMEDICA TOTAL DEFENSE + REPAIR SPF 34, UNTINTED [Suspect]
     Active Substance: OCTINOXATE\ZINC OXIDE
     Indication: PROPHYLAXIS
     Dosage: UNK
     Route: 061
     Dates: start: 20160115
  3. SKINMEDICA TNS ESSENTIAL SERUM [Suspect]
     Active Substance: COSMETICS
     Indication: PROPHYLAXIS
     Dosage: UNK
     Route: 061
     Dates: start: 20160115
  4. PROTOMIX [Concomitant]
     Indication: GASTROOESOPHAGEAL REFLUX DISEASE
     Dosage: 10 MG, UNK
  5. IBUPROFEN. [Concomitant]
     Active Substance: IBUPROFEN
     Indication: PRODUCT USED FOR UNKNOWN INDICATION
     Dosage: 200 MG, PRN
  6. SKINMEDICA HA-5 [Suspect]
     Active Substance: COSMETICS
     Indication: PROPHYLAXIS
     Dosage: UNK
     Route: 061
     Dates: start: 20160115
  7. SKINMEDICA FACIAL CLEANSER [Suspect]
     Active Substance: COSMETICS
     Indication: PROPHYLAXIS
     Dosage: UNK
     Route: 061
     Dates: start: 20160115
  8. SKINMEDICA LYTERA SKIN BRIGHTENING COMPLEX [Suspect]
     Active Substance: COSMETICS
     Indication: PROPHYLAXIS
     Dosage: UNK
     Route: 061
     Dates: start: 20160115
  9. SKINMEDICA REJUVENATIVE MOISTURIZER [Suspect]
     Active Substance: COSMETICS
     Indication: PROPHYLAXIS
     Dosage: UNK
     Route: 061
     Dates: start: 20160115

REACTIONS (4)
  - Ovarian cyst [Recovering/Resolving]
  - Tumour rupture [Recovering/Resolving]
  - Polyp [Recovering/Resolving]
  - Benign ovarian tumour [Recovering/Resolving]

NARRATIVE: CASE EVENT DATE: 20160323
